FAERS Safety Report 8176489-1 (Version None)
Quarter: 2012Q1

REPORT INFORMATION
  Report Type: 
  Country: None (occurrence: None)
  Receive Date: 20120301
  Receipt Date: 20120228
  Transmission Date: 20120608
  Serious: Yes (Other)
  Sender: FDA-Public Use
  Company Number: US-PFIZER INC-2012053386

PATIENT
  Sex: Female
  Weight: 72.109 kg

DRUGS (7)
  1. TRICOR [Concomitant]
     Dosage: 48 MG, UNK
  2. METOPROLOL [Concomitant]
     Indication: BLOOD PRESSURE ABNORMAL
     Dosage: UNK
  3. LEVOTHYROXINE SODIUM [Concomitant]
     Indication: THYROID DISORDER
     Dosage: UNK
  4. ATORVASTATIN CALCIUM [Suspect]
     Dosage: 40 MG, DAILY
     Route: 048
     Dates: start: 20110101, end: 20120101
  5. ATORVASTATIN CALCIUM [Suspect]
     Dosage: 60 MG, DAILY
     Dates: start: 20120101
  6. LIPITOR [Suspect]
     Indication: BLOOD CHOLESTEROL INCREASED
     Dosage: 20 MG, DAILY
     Route: 048
  7. ATORVASTATIN CALCIUM [Suspect]
     Indication: BLOOD CHOLESTEROL INCREASED
     Dosage: 20 MG, DAILY
     Route: 048
     Dates: start: 20110101, end: 20110101

REACTIONS (5)
  - BLOOD CHOLESTEROL INCREASED [None]
  - MYOCARDIAL INFARCTION [None]
  - WRONG TECHNIQUE IN DRUG USAGE PROCESS [None]
  - PRODUCT SUBSTITUTION ISSUE [None]
  - DIARRHOEA [None]
